FAERS Safety Report 14145112 (Version 3)
Quarter: 2017Q4

REPORT INFORMATION
  Report Type: Spontaneous
  Country: US (occurrence: US)
  Receive Date: 20171031
  Receipt Date: 20171113
  Transmission Date: 20180321
  Serious: Yes (Other)
  Sender: FDA-Public Use
  Company Number: US-BAYER-2017-208455

PATIENT
  Age: 25 Year
  Sex: Female

DRUGS (1)
  1. MIRENA [Suspect]
     Active Substance: LEVONORGESTREL
     Dosage: 20 MCG/24HR, CONT
     Route: 015
     Dates: end: 20171108

REACTIONS (8)
  - Genital haemorrhage [None]
  - Device dislocation [None]
  - Ovarian cyst ruptured [None]
  - Anxiety [None]
  - Pelvic pain [None]
  - Device breakage [None]
  - Abdominal distension [None]
  - Device difficult to use [None]

NARRATIVE: CASE EVENT DATE: 2016
